FAERS Safety Report 9394202 (Version 5)
Quarter: 2015Q4

REPORT INFORMATION
  Report Type: Report from Study
  Country: US (occurrence: US)
  Receive Date: 20130711
  Receipt Date: 20151001
  Transmission Date: 20160305
  Serious: Yes (Other)
  Sender: FDA-Public Use
  Company Number: US-AMGEN-USASP2013047911

PATIENT
  Age: 58 Year
  Sex: Male

DRUGS (3)
  1. ENBREL [Suspect]
     Active Substance: ETANERCEPT
     Indication: PSORIASIS
     Dosage: 50 MG, QWK
     Route: 065
     Dates: start: 20120615
  2. IMBRUVICA [Concomitant]
     Active Substance: IBRUTINIB
     Dosage: UNK
  3. ENBREL [Suspect]
     Active Substance: ETANERCEPT
     Dosage: UNK UNK, UNK
     Route: 065

REACTIONS (7)
  - Waldenstrom^s macroglobulinaemia [Unknown]
  - Non-Hodgkin^s lymphoma [Unknown]
  - Condition aggravated [Not Recovered/Not Resolved]
  - Headache [Not Recovered/Not Resolved]
  - Psoriasis [Unknown]
  - Blood test abnormal [Unknown]
  - Insomnia [Unknown]

NARRATIVE: CASE EVENT DATE: 201303
